FAERS Safety Report 9082666 (Version 1)
Quarter: 2013Q1

REPORT INFORMATION
  Report Type: Report from Study
  Country: US (occurrence: US)
  Receive Date: 20130130
  Receipt Date: 20130130
  Transmission Date: 20140127
  Serious: No
  Sender: FDA-Public Use
  Company Number: US-ABBOTT-12P-163-0965218-00

PATIENT
  Age: 53 Year
  Sex: Female
  Weight: 120.31 kg

DRUGS (7)
  1. HUMIRA 40 MG/0.8 ML PEN [Suspect]
     Indication: PSORIATIC ARTHROPATHY
     Dates: start: 20120729
  2. HUMIRA 40 MG/0.8 ML PEN [Suspect]
     Indication: RHEUMATOID ARTHRITIS
  3. HUMIRA 40 MG/0.8 ML PEN [Suspect]
     Indication: PSORIASIS
  4. MELOXICAM [Concomitant]
     Indication: PSORIATIC ARTHROPATHY
  5. MELOXICAM [Concomitant]
     Indication: PSORIASIS
  6. MELOXICAM [Concomitant]
     Indication: RHEUMATOID ARTHRITIS
  7. LEFLUNOMIDE [Concomitant]
     Indication: RHEUMATOID ARTHRITIS

REACTIONS (3)
  - Injection site bruising [Not Recovered/Not Resolved]
  - Capillary fragility [Not Recovered/Not Resolved]
  - Injection site bruising [Not Recovered/Not Resolved]
